FAERS Safety Report 5842226-6 (Version None)
Quarter: 2008Q3

REPORT INFORMATION
  Report Type: 
  Country: None (occurrence: None)
  Receive Date: 20080731
  Receipt Date: 20080617
  Transmission Date: 20090109
  Serious: No
  Sender: FDA-Public Use
  Company Number: US200806004120

PATIENT
  Age: 52 Year
  Sex: Female

DRUGS (3)
  1. BYETTA [Suspect]
     Dosage: 5 UG, 10 UG
     Dates: start: 20080201, end: 20080401
  2. BYETTA [Suspect]
     Dosage: 5 UG, 10 UG
     Dates: start: 20080401, end: 20080607
  3. EXENATIDE PEN, DISPOSABLE DEVICE (EXENATIDE PEN) PEN,DISPOSABLE [Concomitant]

REACTIONS (2)
  - CARDIAC DISORDER [None]
  - DIZZINESS [None]
